FAERS Safety Report 9130279 (Version 1)
Quarter: 2013Q1

REPORT INFORMATION
  Report Type: Spontaneous
  Country: CH (occurrence: CH)
  Receive Date: 20130228
  Receipt Date: 20130228
  Transmission Date: 20140127
  Serious: Yes (Hospitalization, Other)
  Sender: FDA-Public Use
  Company Number: CH-PFIZER INC-2013071369

PATIENT
  Age: 93 Year
  Sex: Male
  Weight: 61.9 kg

DRUGS (10)
  1. LYRICA [Suspect]
     Indication: PERIPHERAL SENSORY NEUROPATHY
     Dosage: 75 MG, 2X/DAY
     Route: 048
     Dates: end: 20130118
  2. AVALOX [Suspect]
     Indication: BRONCHITIS
     Dosage: UNK
     Route: 048
     Dates: start: 20130107, end: 20130113
  3. GUTRON [Concomitant]
     Indication: ORTHOSTATIC HYPOTENSION
     Dosage: 2.5 MG, 1X/DAY
     Route: 048
  4. DUSPATALIN [Concomitant]
     Indication: ABDOMINAL PAIN
     Dosage: 200 MG, 2X/DAY
     Route: 048
     Dates: start: 20130113
  5. ASPIRIN CARDIO [Concomitant]
     Indication: CEREBROVASCULAR ACCIDENT
     Dosage: 100 MG, 1X/DAY
     Route: 048
  6. ZURCAL [Concomitant]
     Indication: MELAENA
     Dosage: 20 MG, 1X/DAY
     Route: 048
  7. CALPEROS D3 [Concomitant]
     Dosage: 1000 MG, 1X/DAY
     Route: 048
  8. LEXOTANIL [Concomitant]
     Indication: ANXIETY DISORDER
     Dosage: 1.5 MG, 2X/DAY
     Route: 048
  9. MOTILIUM ^JANSSEN-CILAG^ [Concomitant]
     Indication: NAUSEA
     Dosage: 10 MG, 3X/DAY
     Route: 048
  10. MOTILIUM ^JANSSEN-CILAG^ [Concomitant]
     Indication: VOMITING

REACTIONS (6)
  - Vertigo [Recovered/Resolved]
  - Dysarthria [Recovered/Resolved]
  - Visual impairment [Unknown]
  - Muscle contractions involuntary [Unknown]
  - Myoclonus [Unknown]
  - Vestibular neuronitis [Unknown]
